FAERS Safety Report 4280793-7 (Version None)
Quarter: 2004Q1

REPORT INFORMATION
  Report Type: 
  Country: None (occurrence: None)
  Receive Date: 20040127
  Receipt Date: 20040115
  Transmission Date: 20041129
  Serious: Yes (Hospitalization)
  Sender: FDA-Public Use
  Company Number: HQWYE983103OCT03

PATIENT
  Age: 41 Year
  Sex: Male

DRUGS (5)
  1. CORDAREX (AMIODARONE, TABLET) [Suspect]
     Indication: ATRIAL FIBRILLATION
     Dosage: ORAL
     Route: 048
     Dates: start: 20020712, end: 20020924
  2. MARCUMAR [Suspect]
     Indication: ATRIAL FIBRILLATION
     Dosage: 2 MG TABLETS (INR ADJUSTED)
     Dates: start: 20020405, end: 20030819
  3. BISOPROLOL FUMARATE [Concomitant]
  4. HYDROCHLOROTHIAZIDE [Concomitant]
  5. ENALAPRIL MALEATE [Concomitant]

REACTIONS (2)
  - HEPATIC NECROSIS [None]
  - HEPATITIS TOXIC [None]
